FAERS Safety Report 16467363 (Version 1)
Quarter: 2019Q2

REPORT INFORMATION
  Report Type: Report from Study
  Country: IT (occurrence: IT)
  Receive Date: 20190624
  Receipt Date: 20190624
  Transmission Date: 20190711
  Serious: Yes (Death, Other)
  Sender: FDA-Public Use
  Company Number: IT-ROCHE-2338678

PATIENT

DRUGS (4)
  1. PEMBROLIZUMAB. [Suspect]
     Active Substance: PEMBROLIZUMAB
     Indication: NON-SMALL CELL LUNG CANCER
     Dosage: FLAT DOSE
     Route: 065
  2. NIVOLUMAB [Suspect]
     Active Substance: NIVOLUMAB
     Indication: NON-SMALL CELL LUNG CANCER
     Route: 065
  3. ATEZOLIZUMAB. [Suspect]
     Active Substance: ATEZOLIZUMAB
     Indication: NON-SMALL CELL LUNG CANCER
     Route: 041
  4. PEMBROLIZUMAB. [Suspect]
     Active Substance: PEMBROLIZUMAB
     Route: 065

REACTIONS (10)
  - Transaminases increased [Unknown]
  - Immune-mediated pneumonitis [Fatal]
  - Myalgia [Unknown]
  - Cardiac disorder [Fatal]
  - Arthralgia [Unknown]
  - Diarrhoea [Unknown]
  - Skin disorder [Unknown]
  - Amylase increased [Unknown]
  - Endocrine disorder [Unknown]
  - Lipase increased [Unknown]
